FAERS Safety Report 5158834-4 (Version None)
Quarter: 2006Q4

REPORT INFORMATION
  Report Type: 
  Country: None (occurrence: None)
  Receive Date: 20061114
  Receipt Date: 20061027
  Transmission Date: 20070319
  Serious: Yes (Hospitalization, Disabling)
  Sender: FDA-Public Use
  Company Number: WAES 0610GBR00542

PATIENT
  Age: 54 Year
  Sex: Male

DRUGS (3)
  1. DECADRON [Suspect]
     Indication: LEUKAEMIA PLASMACYTIC
     Dosage: 9 MG/M(2); UNK, PO
     Route: 048
  2. ADRIAMYCIN PFS [Suspect]
     Indication: LEUKAEMIA PLASMACYTIC
     Dosage: 40 MG, UNK;
  3. VELCADE (BORTEZOMIB0 [Suspect]
     Dosage: 10MG M(2)

REACTIONS (7)
  - BLOOD ALBUMIN DECREASED [None]
  - BLOOD CALCIUM DECREASED [None]
  - HAEMOGLOBIN DECREASED [None]
  - LIGHT CHAIN ANALYSIS ABNORMAL [None]
  - PARAESTHESIA [None]
  - PLATELET COUNT DECREASED [None]
  - STEM CELL TRANSPLANT [None]
